FAERS Safety Report 8772577 (Version 2)
Quarter: 2013Q3

REPORT INFORMATION
  Report Type: Spontaneous
  Country: US (occurrence: US)
  Receive Date: 20120905
  Receipt Date: 20130910
  Transmission Date: 20140515
  Serious: No
  Sender: FDA-Public Use
  Company Number: US-009507513-1207USA012060

PATIENT
  Age: 41 Year
  Sex: Male
  Weight: 111.4 kg

DRUGS (3)
  1. VICTRELIS [Suspect]
     Indication: HEPATITIS C
     Dosage: 800 MG, TID/FOUR CAPSULES EVERY 8 HOURS
     Route: 048
     Dates: start: 20120305
  2. PEGINTERFERON ALFA-2A [Suspect]
     Indication: HEPATITIS C
     Dosage: 150 MICROGRAM, QW
     Route: 058
     Dates: start: 20120215
  3. REBETOL [Suspect]
     Indication: HEPATITIS C
     Route: 048

REACTIONS (2)
  - Neutropenia [Unknown]
  - Asthenia [Unknown]
